FAERS Safety Report 8370596-6 (Version None)
Quarter: 2012Q2

REPORT INFORMATION
  Report Type: 
  Country: None (occurrence: None)
  Receive Date: 20120518
  Receipt Date: 20120508
  Transmission Date: 20120825
  Serious: Yes (Other)
  Sender: FDA-Public Use
  Company Number: SI-ABBOTT-12P-261-0933646-00

PATIENT
  Age: 59 Year
  Sex: Male
  Weight: 110 kg

DRUGS (4)
  1. FOLIC ACID [Concomitant]
     Indication: ARTHROPATHY
  2. HUMIRA [Suspect]
     Indication: ARTHROPATHY
     Route: 058
     Dates: start: 20110704, end: 20120220
  3. NAPROXEN [Concomitant]
     Indication: ARTHROPATHY
  4. ULTOP [Concomitant]
     Indication: ARTHROPATHY

REACTIONS (4)
  - INFECTED DERMAL CYST [None]
  - DERMAL CYST [None]
  - BACTERIAL INFECTION [None]
  - INFLAMMATION [None]
